FAERS Safety Report 8344257-3 (Version None)
Quarter: 2012Q2

REPORT INFORMATION
  Report Type: 
  Country: None (occurrence: None)
  Receive Date: 20120508
  Receipt Date: 20080818
  Transmission Date: 20120825
  Serious: No
  Sender: FDA-Public Use
  Company Number: US-TEVA-US024397

PATIENT
  Age: 66 Year
  Sex: Female

DRUGS (1)
  1. TREANDA [Suspect]
     Indication: CHRONIC LYMPHOCYTIC LEUKAEMIA
     Dosage: 180 MILLIGRAM;
     Route: 042
     Dates: start: 20080501

REACTIONS (2)
  - PRURITUS [None]
  - SWELLING FACE [None]
